FAERS Safety Report 4309510-9 (Version None)
Quarter: 2004Q1

REPORT INFORMATION
  Report Type: 
  Country: None (occurrence: None)
  Receive Date: 20040301
  Receipt Date: 20040213
  Transmission Date: 20041129
  Serious: Yes (Hospitalization, Disabling)
  Sender: FDA-Public Use
  Company Number: 200401039

PATIENT
  Sex: Female

DRUGS (1)
  1. PRED FORTE [Suspect]
     Dates: start: 20020122

REACTIONS (1)
  - BLINDNESS UNILATERAL [None]
